FAERS Safety Report 6813837-6 (Version None)
Quarter: 2010Q3

REPORT INFORMATION
  Report Type: 
  Country: None (occurrence: None)
  Receive Date: 20100702
  Receipt Date: 20100623
  Transmission Date: 20110219
  Serious: Yes (Hospitalization)
  Sender: FDA-Public Use
  Company Number: US-BIOGENIDEC-2010BI021351

PATIENT
  Sex: Female

DRUGS (2)
  1. AVONEX [Suspect]
     Indication: MULTIPLE SCLEROSIS
     Route: 030
     Dates: start: 20060608, end: 20060820
  2. AVONEX [Suspect]
     Route: 030
     Dates: start: 20081024

REACTIONS (3)
  - BLOOD CALCIUM DECREASED [None]
  - SYSTEMIC LUPUS ERYTHEMATOSUS [None]
  - VEIN DISORDER [None]
